FAERS Safety Report 8971177 (Version 19)
Quarter: 2015Q1

REPORT INFORMATION
  Report Type: Spontaneous
  Country: US (occurrence: US)
  Receive Date: 20121217
  Receipt Date: 20150115
  Transmission Date: 20150721
  Serious: Yes (Death, Hospitalization, Other)
  Sender: FDA-Public Use
  Company Number: US-GLAXOSMITHKLINE-A0926476A

PATIENT
  Age: 47 Year
  Sex: Female
  Weight: 70.8 kg

DRUGS (20)
  1. FLOLAN [Suspect]
     Active Substance: EPOPROSTENOL SODIUM
     Dosage: UNK
     Dates: start: 20100422
  2. LETAIRIS [Concomitant]
     Active Substance: AMBRISENTAN
  3. FLOLAN [Suspect]
     Active Substance: EPOPROSTENOL SODIUM
     Indication: PULMONARY ARTERIAL HYPERTENSION
     Dosage: CONTINUOUS43.3 NG/KG/MINCONCENTRATION 45,000 NG/MLVIAL STRENGTH 1.5 MGPUMP RATE 90 ML/DAY
     Route: 042
     Dates: start: 20100419
  4. FLOLAN [Suspect]
     Active Substance: EPOPROSTENOL SODIUM
     Dosage: UNK
     Dates: start: 20100422
  5. FLOLAN [Suspect]
     Active Substance: EPOPROSTENOL SODIUM
     Dates: start: 20100422
  6. FLOLAN [Suspect]
     Active Substance: EPOPROSTENOL SODIUM
     Dosage: 43.3 NG/KG/MIN
     Dates: start: 20100930
  7. CEFAZOLIN [Suspect]
     Active Substance: CEFAZOLIN
     Indication: PRODUCT USED FOR UNKNOWN INDICATION
     Dosage: UNK, U
     Route: 042
  8. FLOLAN [Suspect]
     Active Substance: EPOPROSTENOL SODIUM
     Dosage: UNK
     Dates: start: 20100422
  9. FLOLAN [Suspect]
     Active Substance: EPOPROSTENOL SODIUM
     Dosage: UNK
     Dates: start: 20100422
  10. OXYGEN. [Concomitant]
     Active Substance: OXYGEN
     Indication: PRODUCT USED FOR UNKNOWN INDICATION
     Route: 065
  11. LASIX [Concomitant]
     Active Substance: FUROSEMIDE
     Indication: PRODUCT USED FOR UNKNOWN INDICATION
     Route: 065
  12. FLOLAN [Suspect]
     Active Substance: EPOPROSTENOL SODIUM
     Dosage: UNK
     Dates: start: 20100422
  13. FLOLAN [Suspect]
     Active Substance: EPOPROSTENOL SODIUM
     Dates: start: 20100422
  14. ADCIRCA [Concomitant]
     Active Substance: TADALAFIL
  15. WARFARIN [Concomitant]
     Active Substance: WARFARIN
  16. FLOLAN [Suspect]
     Active Substance: EPOPROSTENOL SODIUM
     Indication: PULMONARY ARTERIAL HYPERTENSION
     Dosage: UNK
     Dates: start: 20100422
  17. FLOLAN [Suspect]
     Active Substance: EPOPROSTENOL SODIUM
     Dosage: UNK
     Dates: start: 20100422
  18. FLOLAN [Suspect]
     Active Substance: EPOPROSTENOL SODIUM
     Dosage: 43.3NG/KG/MIN
     Route: 042
     Dates: start: 20100419
  19. COUMADIN [Concomitant]
     Active Substance: WARFARIN SODIUM
     Indication: PRODUCT USED FOR UNKNOWN INDICATION
     Route: 065
  20. FLOLAN [Suspect]
     Active Substance: EPOPROSTENOL SODIUM
     Dates: start: 20100422

REACTIONS (32)
  - Rash [Unknown]
  - Dizziness [Unknown]
  - Obstruction [Unknown]
  - Lung transplant [Unknown]
  - Headache [Unknown]
  - Drug dose omission [Unknown]
  - Palpitations [Unknown]
  - Catheter removal [Unknown]
  - Lip discolouration [Unknown]
  - Cyanosis [Unknown]
  - Respiratory tract infection [Unknown]
  - Fluid overload [Unknown]
  - Pain in extremity [Unknown]
  - Speech disorder [Unknown]
  - Respiratory therapy [Unknown]
  - Death [Fatal]
  - Drug administration error [Unknown]
  - Pallor [Unknown]
  - Dyspnoea [Unknown]
  - Device breakage [Unknown]
  - Transfusion [Unknown]
  - Surgery [Unknown]
  - Cardiac failure congestive [Unknown]
  - Dehydration [Unknown]
  - Device related infection [Unknown]
  - Nausea [Unknown]
  - Chest pain [Unknown]
  - Pain in jaw [Unknown]
  - Fluid retention [Unknown]
  - Emergency care examination [Unknown]
  - Infusion site infection [Unknown]
  - Catheter placement [Unknown]

NARRATIVE: CASE EVENT DATE: 201301
